FAERS Safety Report 8248103-8 (Version None)
Quarter: 2012Q1

REPORT INFORMATION
  Report Type: 
  Country: None (occurrence: None)
  Receive Date: 20120330
  Receipt Date: 20120328
  Transmission Date: 20120608
  Serious: No
  Sender: FDA-Public Use
  Company Number: US-PFIZER INC-2012067727

PATIENT
  Sex: Male
  Weight: 90.703 kg

DRUGS (3)
  1. VICODIN [Concomitant]
     Indication: BACK PAIN
     Dosage: UNK, AS NEEDED
  2. CHANTIX [Suspect]
     Indication: SMOKING CESSATION THERAPY
     Dosage: 0.5 MG, DAILY
     Route: 048
     Dates: start: 20120310, end: 20120301
  3. CHANTIX [Suspect]

REACTIONS (2)
  - CIRCUMSTANCE OR INFORMATION CAPABLE OF LEADING TO MEDICATION ERROR [None]
  - LOSS OF LIBIDO [None]
